FAERS Safety Report 4425506-0 (Version None)
Quarter: 2004Q3

REPORT INFORMATION
  Report Type: 
  Country: None (occurrence: None)
  Receive Date: 20040719
  Receipt Date: 20030609
  Transmission Date: 20050211
  Serious: Yes (Hospitalization)
  Sender: FDA-Public Use
  Company Number: 174095

PATIENT
  Sex: Female
  Weight: 115.2136 kg

DRUGS (8)
  1. AVONEX [Suspect]
     Indication: MULTIPLE SCLEROSIS
     Dosage: 30 MCG QW IM
     Route: 030
     Dates: start: 20030201, end: 20030501
  2. ZOCOR [Concomitant]
  3. NORVASC [Concomitant]
  4. PLAVIX [Concomitant]
  5. INSULIN [Concomitant]
  6. IMDUR [Concomitant]
  7. AVANDIA [Concomitant]
  8. ACCUPRIL [Concomitant]

REACTIONS (2)
  - MULTIPLE SCLEROSIS RELAPSE [None]
  - SPINAL OSTEOARTHRITIS [None]
